FAERS Safety Report 4311191-5 (Version None)
Quarter: 2004Q1

REPORT INFORMATION
  Report Type: 
  Country: None (occurrence: None)
  Receive Date: 20040302
  Receipt Date: 20040302
  Transmission Date: 20041129
  Serious: Yes (Life-Threatening, Hospitalization)
  Sender: FDA-Public Use
  Company Number: None

PATIENT
  Age: 52 Year
  Sex: Male
  Weight: 90.8 kg

DRUGS (17)
  1. SIMVASTATIN [Suspect]
  2. ASPIRIN [Concomitant]
  3. ATENOLOL [Concomitant]
  4. BISACODYL [Concomitant]
  5. SINEMET CR [Concomitant]
  6. DOCUSATE [Concomitant]
  7. FOLIC ACID [Concomitant]
  8. IBUPROFEN [Concomitant]
  9. LISINOPRIL [Concomitant]
  10. LORAZEPAM [Concomitant]
  11. MULTI-VITAMIN [Concomitant]
  12. NITROGLYCERIN [Concomitant]
  13. THIAMINE [Concomitant]
  14. TRIHEXYPHENIDYL HCL [Concomitant]
  15. ACETAMINOPHEN [Concomitant]
  16. INSULIN HUMAN NPH [Concomitant]
  17. INSULIN HUMAN REGULAR [Concomitant]

REACTIONS (1)
  - BLOOD CREATINE PHOSPHOKINASE INCREASED [None]
